FAERS Safety Report 9461633 (Version 1)
Quarter: 2013Q3

REPORT INFORMATION
  Report Type: Report from Study
  Country: DE (occurrence: DE)
  Receive Date: 20130816
  Receipt Date: 20130816
  Transmission Date: 20140515
  Serious: Yes (Hospitalization)
  Sender: FDA-Public Use
  Company Number: DE-ABBOTT-13P-062-1034299-00

PATIENT
  Age: 84 Year
  Sex: Female
  Weight: 75 kg

DRUGS (4)
  1. HUMIRA [Suspect]
     Indication: RHEUMATOID ARTHRITIS
     Route: 050
     Dates: start: 200712, end: 20120607
  2. PREDNISOLONE [Concomitant]
     Indication: RHEUMATOID ARTHRITIS
     Dosage: 5 MG DAILY
     Route: 048
     Dates: start: 199812
  3. ATACAND [Concomitant]
     Indication: HYPERTENSION
     Dosage: 8 MG DAILY
     Route: 048
     Dates: start: 19980910
  4. CALCILAC D3 [Concomitant]
     Indication: OSTEOPOROSIS
     Dosage: 1000 MG DAILY
     Dates: start: 200707

REACTIONS (5)
  - Arthropathy [Unknown]
  - Rheumatoid arthritis [Recovered/Resolved]
  - Joint swelling [Unknown]
  - Atrial fibrillation [Unknown]
  - Atrial fibrillation [Unknown]
